FAERS Safety Report 16929565 (Version 1)
Quarter: 2019Q4

REPORT INFORMATION
  Report Type: Spontaneous
  Country: US (occurrence: US)
  Receive Date: 20191017
  Receipt Date: 20191017
  Transmission Date: 20200122
  Serious: Yes (Hospitalization)
  Sender: FDA-Public Use
  Company Number: US-JNJFOC-20191015397

PATIENT
  Sex: Female

DRUGS (1)
  1. INVOKANA [Suspect]
     Active Substance: CANAGLIFLOZIN
     Indication: TYPE 2 DIABETES MELLITUS
     Dosage: 30 MINUTES BEFORE BREAKFAST
     Route: 048
     Dates: start: 20170803, end: 20180202

REACTIONS (2)
  - Tinea infection [Unknown]
  - Necrotising fasciitis [Recovered/Resolved]
